FAERS Safety Report 23534620 (Version 1)
Quarter: 2024Q1

REPORT INFORMATION
  Report Type: Spontaneous
  Country: GB (occurrence: GB)
  Receive Date: 20240217
  Receipt Date: 20240217
  Transmission Date: 20240410
  Serious: Yes (Hospitalization)
  Sender: FDA-Public Use
  Company Number: None

PATIENT
  Age: 52 Year
  Sex: Female

DRUGS (11)
  1. ADALIMUMAB [Suspect]
     Active Substance: ADALIMUMAB\ISOPROPYL ALCOHOL
     Indication: Product used for unknown indication
     Dosage: UNK
     Route: 065
     Dates: start: 202108
  2. ADALIMUMAB [Suspect]
     Active Substance: ADALIMUMAB\ISOPROPYL ALCOHOL
     Dosage: UNK UNK, QWK (INCREASED TO WEEKLY IN JUN/2023)
     Route: 065
     Dates: start: 202306, end: 202309
  3. CHOLECALCIFEROL [Concomitant]
     Active Substance: CHOLECALCIFEROL
     Dosage: 800 INTERNATIONAL UNIT, QD
  4. SOPROBEC [Concomitant]
     Dosage: 100 MICROGRAM/DOSE
  5. CHOLECALCIFEROL [Concomitant]
     Active Substance: CHOLECALCIFEROL
     Dosage: UNK
  6. FOLIC ACID [Concomitant]
     Active Substance: FOLIC ACID
     Dosage: 5 MILLIGRAM, QD
  7. CITALOPRAM [Concomitant]
     Active Substance: CITALOPRAM HYDROBROMIDE
     Dosage: 20 MILLIGRAM, QD
  8. ESTRADIOL [Concomitant]
     Active Substance: ESTRADIOL
     Dosage: 50 MICROGRAM/DOSE/24HOURS, QD
  9. VEDOLIZUMAB [Concomitant]
     Active Substance: VEDOLIZUMAB
     Dosage: 300 MILLIGRAM
  10. HYDROXOCOBALAMIN [Concomitant]
     Active Substance: HYDROXOCOBALAMIN
     Dosage: 1 MILLIGRAM
  11. LEVONORGESTREL [Concomitant]
     Active Substance: LEVONORGESTREL
     Dosage: 7 MCG//24HOURS, QD. USE AS DIRECTED.

REACTIONS (6)
  - Lethargy [Unknown]
  - Arthralgia [Unknown]
  - Cough [Unknown]
  - Hypersensitivity [Recovered/Resolved]
  - Rash [Unknown]
  - Dyspnoea [Unknown]
